FAERS Safety Report 21024649 (Version 1)
Quarter: 2022Q2

REPORT INFORMATION
  Report Type: Spontaneous
  Country: US (occurrence: US)
  Receive Date: 20220629
  Receipt Date: 20220629
  Transmission Date: 20220721
  Serious: No
  Sender: FDA-Public Use
  Company Number: US-009507513-2206USA002314

PATIENT
  Age: 25 Year
  Sex: Male

DRUGS (7)
  1. STROMECTOL [Suspect]
     Active Substance: IVERMECTIN
     Indication: COVID-19
     Route: 048
  2. HYDROXYCHLOROQUINE [Concomitant]
     Active Substance: HYDROXYCHLOROQUINE
  3. AZITHROMYCIN [Concomitant]
     Active Substance: AZITHROMYCIN
  4. TOCILIZUMAB [Concomitant]
     Active Substance: TOCILIZUMAB
  5. ANAKINRA [Concomitant]
     Active Substance: ANAKINRA
  6. COVID-19 CONVALESCENT PLASMA [Concomitant]
     Active Substance: COVID-19 CONVALESCENT PLASMA
  7. REMDESIVIR [Concomitant]
     Active Substance: REMDESIVIR

REACTIONS (1)
  - Product use in unapproved indication [Unknown]
